FAERS Safety Report 5363688-7 (Version None)
Quarter: 2007Q2

REPORT INFORMATION
  Report Type: 
  Country: None (occurrence: None)
  Receive Date: 20070620
  Receipt Date: 20070613
  Transmission Date: 20071010
  Serious: Yes (Hospitalization)
  Sender: FDA-Public Use
  Company Number: HU-AVENTIS-200715347GDDC

PATIENT
  Age: 3 Year
  Sex: Female

DRUGS (1)
  1. GLIMEPIRIDE WINTHROP [Suspect]
     Dosage: DOSE: 4-8
     Route: 048
     Dates: start: 20070611, end: 20070611

REACTIONS (1)
  - ACCIDENTAL DRUG INTAKE BY CHILD [None]
